FAERS Safety Report 25372676 (Version 1)
Quarter: 2025Q2

REPORT INFORMATION
  Report Type: Spontaneous
  Country: US (occurrence: US)
  Receive Date: 20250529
  Receipt Date: 20250529
  Transmission Date: 20250716
  Serious: No
  Sender: GLAXOSMITHKLINE
  Company Number: US-GSK-US2025AMR066448

PATIENT
  Sex: Female

DRUGS (1)
  1. ZEJULA [Suspect]
     Active Substance: NIRAPARIB
     Indication: Malignant ascites
     Dosage: 100 MG, QD
     Route: 048

REACTIONS (2)
  - Hypersensitivity [Unknown]
  - Adverse drug reaction [Unknown]
